FAERS Safety Report 13367291 (Version 1)
Quarter: 2017Q1

REPORT INFORMATION
  Report Type: Spontaneous
  Country: US (occurrence: US)
  Receive Date: 20170324
  Receipt Date: 20170324
  Transmission Date: 20170429
  Serious: No
  Sender: FDA-Public Use
  Company Number: US-ASTRAZENECA-2017SE27767

PATIENT
  Age: 26175 Day
  Sex: Female
  Weight: 93 kg

DRUGS (6)
  1. BRILINTA [Suspect]
     Active Substance: TICAGRELOR
     Indication: VENOUS THROMBOSIS
     Route: 048
     Dates: start: 20170310
  2. ROSUVASTATIN. [Suspect]
     Active Substance: ROSUVASTATIN
     Indication: CARDIAC DISORDER
     Route: 048
     Dates: start: 20170310
  3. ENALAPRIL [Concomitant]
     Active Substance: ENALAPRIL
     Indication: HYPERTENSION
     Route: 048
  4. METOPROLOL. [Suspect]
     Active Substance: METOPROLOL
     Route: 048
     Dates: start: 20170310
  5. BRILINTA [Suspect]
     Active Substance: TICAGRELOR
     Indication: STENT PLACEMENT
     Route: 048
     Dates: start: 20170310
  6. ASPIRIN. [Concomitant]
     Active Substance: ASPIRIN
     Indication: ADJUVANT THERAPY
     Route: 048
     Dates: start: 20170310

REACTIONS (3)
  - Off label use [Unknown]
  - Vision blurred [Not Recovered/Not Resolved]
  - Product use issue [Unknown]

NARRATIVE: CASE EVENT DATE: 20170311
